FAERS Safety Report 10488129 (Version 3)
Quarter: 2014Q4

REPORT INFORMATION
  Report Type: Spontaneous
  Country: GB (occurrence: GB)
  Receive Date: 20141002
  Receipt Date: 20141028
  Transmission Date: 20150528
  Serious: Yes (Other)
  Sender: FDA-Public Use
  Company Number: GB-ROCHE-1468040

PATIENT
  Sex: Female

DRUGS (2)
  1. LUCENTIS [Suspect]
     Active Substance: RANIBIZUMAB
     Indication: MACULAR OEDEMA
     Route: 050
  2. LUCENTIS [Suspect]
     Active Substance: RANIBIZUMAB
     Indication: RETINAL VEIN OCCLUSION

REACTIONS (13)
  - Fall [Unknown]
  - Visual acuity reduced [Unknown]
  - Leukaemia [Unknown]
  - Malaise [Unknown]
  - Dizziness [Unknown]
  - Foreign body sensation in eyes [Unknown]
  - Sneezing [Unknown]
  - Retinal haemorrhage [Unknown]
  - Nasopharyngitis [Unknown]
  - Eye injury [Unknown]
  - Pyrexia [Unknown]
  - Eye haemorrhage [Unknown]
  - Cough [Unknown]
